FAERS Safety Report 4431185-9 (Version None)
Quarter: 2004Q3

REPORT INFORMATION
  Report Type: 
  Country: None (occurrence: None)
  Receive Date: 20040824
  Receipt Date: 20040816
  Transmission Date: 20050211
  Serious: Yes (Other)
  Sender: FDA-Public Use
  Company Number: PHEH2004US08851

PATIENT
  Age: 82 Year
  Sex: Male

DRUGS (4)
  1. ZELNORM [Suspect]
     Indication: CONSTIPATION
     Dosage: 6 MG, BID
     Route: 048
  2. DULCOLAX [Concomitant]
  3. FIBERCON [Concomitant]
  4. MIRALAX [Concomitant]

REACTIONS (3)
  - ANORECTAL DISORDER [None]
  - FAECES DISCOLOURED [None]
  - RECTAL HAEMORRHAGE [None]
